FAERS Safety Report 26113726 (Version 1)
Quarter: 2025Q4

REPORT INFORMATION
  Report Type: Spontaneous
  Country: CN (occurrence: CN)
  Receive Date: 20251202
  Receipt Date: 20251202
  Transmission Date: 20260117
  Serious: Yes (Hospitalization)
  Sender: MERCK SHARP & DOHME LLC
  Company Number: CN-009507513-2355537

PATIENT
  Age: 64 Year
  Sex: Female

DRUGS (2)
  1. ERTAPENEM [Suspect]
     Active Substance: ERTAPENEM
     Indication: Infection
     Route: 041
     Dates: start: 20251121, end: 20251126
  2. HERBALS [Suspect]
     Active Substance: HERBALS
     Indication: Symptomatic treatment
     Route: 041
     Dates: start: 20251121, end: 20251127

REACTIONS (1)
  - Drug-induced liver injury [Unknown]

NARRATIVE: CASE EVENT DATE: 20251126
